FAERS Safety Report 4771724-1 (Version None)
Quarter: 2005Q3

REPORT INFORMATION
  Report Type: 
  Country: None (occurrence: None)
  Receive Date: 20050916
  Receipt Date: 20050909
  Transmission Date: 20060218
  Serious: Yes (Other)
  Sender: FDA-Public Use
  Company Number: US-ROCHE-417431

PATIENT
  Sex: Male

DRUGS (2)
  1. FUZEON [Suspect]
     Route: 058
  2. FUZEON [Suspect]
     Route: 058

REACTIONS (1)
  - DIABETES MELLITUS NON-INSULIN-DEPENDENT [None]
